FAERS Safety Report 7627547-9 (Version None)
Quarter: 2011Q3

REPORT INFORMATION
  Report Type: 
  Country: None (occurrence: None)
  Receive Date: 20110721
  Receipt Date: 20110706
  Transmission Date: 20111222
  Serious: Yes (Hospitalization, Other)
  Sender: FDA-Public Use
  Company Number: US-TYCO HEALTHCARE/MALLINCKRODT-T201101355

PATIENT
  Age: 44 Year
  Sex: Female

DRUGS (4)
  1. HYDROCHLOROTHIAZIDE [Concomitant]
     Indication: HYPERTENSION
  2. MORPHINE [Suspect]
     Dosage: PCA, BASAL 2MG/HR + 1MG/15MINS MAX 6MG/HR
     Route: 041
  3. MORPHINE [Suspect]
     Dosage: ADDITIONAL 21 MG PER USE OF PCA
     Route: 041
  4. MORPHINE [Suspect]
     Indication: PAIN
     Dosage: 28 MG OVER 18 HOURS
     Route: 040

REACTIONS (1)
  - CARDIOGENIC SHOCK [None]
